FAERS Safety Report 23610061 (Version 1)
Quarter: 2024Q1

REPORT INFORMATION
  Report Type: Spontaneous
  Country: US (occurrence: None)
  Receive Date: 20240307
  Receipt Date: 20240307
  Transmission Date: 20240410
  Serious: Yes (Hospitalization)
  Sender: FDA-Public Use
  Company Number: None

PATIENT
  Age: 61 Year
  Sex: Female

DRUGS (13)
  1. ENVARSUS XR [Suspect]
     Active Substance: TACROLIMUS
     Indication: Renal transplant
     Dosage: FREQUENCY : DAILY;?
     Route: 048
     Dates: start: 20231106
  2. ATOVAQUONE 750MG/5ML [Concomitant]
     Dates: start: 20240214
  3. ENVARSUS XR [Concomitant]
     Active Substance: TACROLIMUS
     Dates: start: 20231221
  4. FERROUS SULFATE 324MG [Concomitant]
  5. FLUCONAZOLE [Concomitant]
     Active Substance: FLUCONAZOLE
  6. MYCOPHENOLIC ACID [Concomitant]
     Active Substance: MYCOPHENOLIC ACID
     Dates: start: 20231106
  7. NYSTATIN ORAL SUS 100,000UNIT/ML [Concomitant]
  8. OMEPRAZOLE [Concomitant]
     Active Substance: OMEPRAZOLE
     Dates: start: 20231106, end: 20231206
  9. POLYETHYLENE GLYCOL 3350 [Concomitant]
     Active Substance: POLYETHYLENE GLYCOL 3350
  10. PREDNISONE [Concomitant]
     Active Substance: PREDNISONE
     Dates: start: 20231106
  11. PREVYMIS [Concomitant]
     Active Substance: LETERMOVIR
  12. BACTRIM 400-80MG [Concomitant]
     Dates: start: 20231106
  13. VALACYCLOVIR 1GRAM [Concomitant]

REACTIONS (1)
  - Neutropenia [None]

NARRATIVE: CASE EVENT DATE: 20240223
